FAERS Safety Report 9377939 (Version 2)
Quarter: 2013Q3

REPORT INFORMATION
  Report Type: Spontaneous
  Country: BR (occurrence: BR)
  Receive Date: 20130701
  Receipt Date: 20130822
  Transmission Date: 20140515
  Serious: Yes (Other)
  Sender: FDA-Public Use
  Company Number: PHHY2013BR067874

PATIENT
  Age: 9 Year
  Sex: Male

DRUGS (1)
  1. RITALINA [Suspect]
     Indication: ATTENTION DEFICIT/HYPERACTIVITY DISORDER
     Dosage: 1.5 DF, BID(1 TABLET AND A HALF IN THE MORNING AND 1 TABLET AND A HALF AT AFTERNOON)
     Route: 048

REACTIONS (5)
  - Rebound effect [Recovering/Resolving]
  - Agitation [Recovering/Resolving]
  - Performance status decreased [Recovering/Resolving]
  - Disturbance in attention [Recovering/Resolving]
  - Psychomotor hyperactivity [Recovering/Resolving]
